FAERS Safety Report 7331022-9 (Version None)
Quarter: 2011Q1

REPORT INFORMATION
  Report Type: 
  Country: None (occurrence: None)
  Receive Date: 20110304
  Receipt Date: 20110301
  Transmission Date: 20110831
  Serious: Yes (Other)
  Sender: FDA-Public Use
  Company Number: US-PFIZER INC-2011045683

PATIENT
  Sex: Male

DRUGS (10)
  1. KOGENATE FS [Suspect]
     Indication: FACTOR VIII DEFICIENCY
     Dosage: UNK, TWICE A DAY
     Dates: start: 20110107
  2. XYNTHA [Suspect]
     Dosage: UNK
     Dates: start: 20110116
  3. XYNTHA [Suspect]
     Dosage: UNK
     Dates: start: 20110223
  4. XYNTHA [Suspect]
     Indication: FACTOR VIII DEFICIENCY
     Dosage: UNK
  5. XYNTHA [Suspect]
     Indication: PROPHYLAXIS
     Dosage: UNK
     Dates: start: 20110110
  6. KOGENATE FS [Suspect]
     Indication: PROPHYLAXIS
     Dosage: UNK, TWICE A DAY
     Dates: start: 20110109
  7. XYNTHA [Suspect]
     Dosage: UNK
     Dates: start: 20110114
  8. XYNTHA [Suspect]
     Dosage: UNK
     Dates: start: 20110118
  9. XYNTHA [Suspect]
     Dosage: UNK
     Dates: start: 20110222
  10. XYNTHA [Suspect]
     Dosage: UNK
     Dates: start: 20110112

REACTIONS (1)
  - FACTOR VIII INHIBITION [None]
